FAERS Safety Report 8823280 (Version 1)
Quarter: 2012Q4

REPORT INFORMATION
  Report Type: 
  Country: IT (occurrence: IT)
  Receive Date: 20121003
  Receipt Date: 20121003
  Transmission Date: 20130627
  Serious: Yes (Hospitalization)
  Sender: FDA-Public Use
  Company Number: IT-GLAXOSMITHKLINE-B0835104A

PATIENT
  Age: 0 Year
  Sex: Female

DRUGS (2)
  1. ZANTAC [Suspect]
     Indication: GASTROOESOPHAGEAL REFLUX DISEASE
     Dosage: 8MGK per day
     Route: 048
     Dates: start: 20120920, end: 20120921
  2. SUPPLEMENT [Concomitant]
     Indication: PRODUCT USED FOR UNKNOWN INDICATION
     Route: 048
     Dates: start: 20120920, end: 20120922

REACTIONS (2)
  - Convulsion [Recovering/Resolving]
  - Somnolence [Unknown]
